FAERS Safety Report 12182626 (Version 4)
Quarter: 2016Q3

REPORT INFORMATION
  Report Type: Report from Study
  Country: US (occurrence: US)
  Receive Date: 20160316
  Receipt Date: 20160902
  Transmission Date: 20161109
  Serious: Yes (Other)
  Sender: FDA-Public Use
  Company Number: US-GILEAD-2016-0203099

PATIENT
  Age: 42 Year
  Sex: Female

DRUGS (40)
  1. AMBRISENTAN [Suspect]
     Active Substance: AMBRISENTAN
     Indication: CONNECTIVE TISSUE DISORDER
  2. FLUTICASONE [Concomitant]
     Active Substance: FLUTICASONE\FLUTICASONE PROPIONATE
  3. FOSAMAX [Concomitant]
     Active Substance: ALENDRONATE SODIUM
  4. FOSAMAX [Concomitant]
     Active Substance: ALENDRONATE SODIUM
  5. LEFLUNOMIDE. [Concomitant]
     Active Substance: LEFLUNOMIDE
  6. MYCOPHENOLATE [Concomitant]
     Active Substance: MYCOPHENOLIC ACID
  7. FOLIC ACID. [Concomitant]
     Active Substance: FOLIC ACID
  8. OYSCO 500+D [Concomitant]
  9. IPRATROPIUM [Concomitant]
     Active Substance: IPRATROPIUM
  10. METOPROLOL. [Concomitant]
     Active Substance: METOPROLOL
  11. PREDNISONE. [Concomitant]
     Active Substance: PREDNISONE
  12. CLOBETASOL [Concomitant]
     Active Substance: CLOBETASOL
  13. ADEMPAS [Concomitant]
     Active Substance: RIOCIGUAT
  14. FLUTICASONE [Concomitant]
     Active Substance: FLUTICASONE\FLUTICASONE PROPIONATE
  15. FUROSEMIDE. [Concomitant]
     Active Substance: FUROSEMIDE
  16. FAMOTIDINE. [Concomitant]
     Active Substance: FAMOTIDINE
  17. LYRICA [Concomitant]
     Active Substance: PREGABALIN
  18. LYRICA [Concomitant]
     Active Substance: PREGABALIN
  19. PLAQUENIL                          /00072602/ [Concomitant]
     Active Substance: HYDROXYCHLOROQUINE DIPHOSPHATE
  20. AMLODIPINE [Concomitant]
     Active Substance: AMLODIPINE BESYLATE
  21. POT CL MICRO [Concomitant]
  22. HYDROXCHLOR TAB [Concomitant]
  23. SILDENAFIL. [Concomitant]
     Active Substance: SILDENAFIL
  24. FAMOTIDINE. [Concomitant]
     Active Substance: FAMOTIDINE
  25. FUROSEMIDE. [Concomitant]
     Active Substance: FUROSEMIDE
  26. HYDROCORT                          /00028602/ [Concomitant]
  27. XARELTO [Concomitant]
     Active Substance: RIVAROXABAN
  28. XARELTO [Concomitant]
     Active Substance: RIVAROXABAN
  29. CELLCEPT [Concomitant]
     Active Substance: MYCOPHENOLATE MOFETIL\MYCOPHENOLATE MOFETIL HYDROCHLORIDE
  30. MICRO K [Concomitant]
  31. AMLODIPINE [Concomitant]
     Active Substance: AMLODIPINE BESYLATE
  32. IPRATROPIUM [Concomitant]
     Active Substance: IPRATROPIUM
  33. PREDNISONE. [Concomitant]
     Active Substance: PREDNISONE
  34. HYDROCODONE BITARTRATE AND ACETAMINOPHEN [Concomitant]
     Active Substance: ACETAMINOPHEN\HYDROCODONE BITARTRATE
  35. METHOTREXATE. [Concomitant]
     Active Substance: METHOTREXATE
  36. AMBRISENTAN [Suspect]
     Active Substance: AMBRISENTAN
     Indication: PULMONARY HYPERTENSION
     Dosage: 10 MG, QD
     Route: 065
     Dates: start: 20160106
  37. ADEMPAS [Concomitant]
     Active Substance: RIOCIGUAT
  38. HYDROCHLOROTH [Concomitant]
     Active Substance: HYDROCHLOROTHIAZIDE
  39. LEFLUNOMIDE. [Concomitant]
     Active Substance: LEFLUNOMIDE
  40. ALENDRONATE [Concomitant]
     Active Substance: ALENDRONATE SODIUM

REACTIONS (5)
  - Dizziness [Not Recovered/Not Resolved]
  - Syncope [Not Recovered/Not Resolved]
  - Nasal congestion [Not Recovered/Not Resolved]
  - Oropharyngeal pain [Not Recovered/Not Resolved]
  - Aphonia [Recovered/Resolved]

NARRATIVE: CASE EVENT DATE: 201602
